FAERS Safety Report 6537217-6 (Version None)
Quarter: 2010Q1

REPORT INFORMATION
  Report Type: 
  Country: None (occurrence: None)
  Receive Date: 20100114
  Receipt Date: 20100106
  Transmission Date: 20100710
  Serious: Yes (Hospitalization, Other)
  Sender: FDA-Public Use
  Company Number: US-ROCHE-627724

PATIENT
  Sex: Female
  Weight: 63.5 kg

DRUGS (11)
  1. CAPECITABINE [Suspect]
     Indication: BREAST CANCER
     Dosage: TEMPORARILY DISCONTINUED
     Route: 048
     Dates: start: 20090222, end: 20090530
  2. CAPECITABINE [Suspect]
     Dosage: TAKEN 2 TABLETS IN AM AND 1 TABLET IN PM.
     Route: 048
     Dates: start: 20090303, end: 20091106
  3. CAPECITABINE [Suspect]
     Route: 048
     Dates: end: 20091207
  4. TYKERB [Concomitant]
  5. LYSINE [Concomitant]
  6. VITAMIN B6 [Concomitant]
  7. VITAMIN B-12 [Concomitant]
  8. METOPROLOL [Concomitant]
  9. SYNTHROID [Concomitant]
  10. NEURONTIN [Concomitant]
  11. MS CONTIN [Concomitant]

REACTIONS (9)
  - DIARRHOEA [None]
  - DRY SKIN [None]
  - INTESTINAL OBSTRUCTION [None]
  - LOCALISED INFECTION [None]
  - NEUROPATHY PERIPHERAL [None]
  - ONYCHOMADESIS [None]
  - RASH [None]
  - SKIN DISORDER [None]
  - SKIN EXFOLIATION [None]
